FAERS Safety Report 19901096 (Version 4)
Quarter: 2022Q1

REPORT INFORMATION
  Report Type: Spontaneous
  Country: US (occurrence: US)
  Receive Date: 20210930
  Receipt Date: 20220104
  Transmission Date: 20220423
  Serious: Yes (Hospitalization)
  Sender: FDA-Public Use
  Company Number: US-PFIZER INC-202100977598

PATIENT
  Age: 80 Year
  Sex: Male
  Weight: 99.34 kg

DRUGS (2)
  1. XELJANZ [Suspect]
     Active Substance: TOFACITINIB CITRATE
     Indication: Colitis ulcerative
     Dosage: 10 MG, 2X/DAY (ONCE IN THE MORNING AND ONCE IN THE EVENING)
     Route: 048
     Dates: start: 20191112
  2. XELJANZ [Suspect]
     Active Substance: TOFACITINIB CITRATE
     Dosage: 10 MG, 1X/DAY (AS DIRECTED FOR 90 DAYS)
     Route: 048

REACTIONS (5)
  - COVID-19 [Recovered/Resolved]
  - Drug hypersensitivity [Unknown]
  - Weight decreased [Unknown]
  - Hypoacusis [Unknown]
  - Off label use [Unknown]

NARRATIVE: CASE EVENT DATE: 20210824
